FAERS Safety Report 14435838 (Version 1)
Quarter: 2018Q1

REPORT INFORMATION
  Report Type: Report from Study
  Country: US (occurrence: US)
  Receive Date: 20180125
  Receipt Date: 20180125
  Transmission Date: 20180509
  Serious: Yes (Other)
  Sender: FDA-Public Use
  Company Number: US-CIPLA LTD.-2018US01568

PATIENT

DRUGS (2)
  1. P53MVA VACCINE [Suspect]
     Active Substance: INVESTIGATIONAL PRODUCT
     Indication: OVARIAN CANCER RECURRENT
     Dosage: 5.6 X 10^8 PFU, ON DAY 15 OF THE FIRST 3 CYCLES
     Route: 030
  2. GEMCITABINE [Suspect]
     Active Substance: GEMCITABINE\GEMCITABINE HYDROCHLORIDE
     Indication: OVARIAN CANCER RECURRENT
     Dosage: 1000 MG/M2, AS A 30-MIN INTRAVENOUS (IV) INFUSION, ON DAYS 1 AND 8 OF 21 DAYS CYCLE
     Route: 042

REACTIONS (2)
  - Malignant neoplasm progression [Unknown]
  - Ovarian cancer recurrent [None]
